FAERS Safety Report 8893787 (Version 1)
Quarter: 2012Q4

REPORT INFORMATION
  Report Type: 
  Country: US (occurrence: US)
  Receive Date: 20121108
  Receipt Date: 20121108
  Transmission Date: 20130627
  Serious: No
  Sender: FDA-Public Use
  Company Number: US-PFIZER INC-2012276519

PATIENT
  Sex: Female

DRUGS (1)
  1. INLYTA [Suspect]
     Dosage: UNK

REACTIONS (4)
  - Migraine [Unknown]
  - Oropharyngeal pain [Unknown]
  - Eye pain [Unknown]
  - Rhinalgia [Unknown]
